APPROVED DRUG PRODUCT: APREMILAST
Active Ingredient: APREMILAST
Strength: 10MG
Dosage Form/Route: TABLET;ORAL
Application: A211782 | Product #001
Applicant: AMNEAL EU LTD
Approved: Jun 30, 2021 | RLD: No | RS: No | Type: DISCN